FAERS Safety Report 19507363 (Version 1)
Quarter: 2021Q3

REPORT INFORMATION
  Report Type: Spontaneous
  Country: US (occurrence: US)
  Receive Date: 20210708
  Receipt Date: 20210708
  Transmission Date: 20211014
  Serious: No
  Sender: FDA-Public Use
  Company Number: US-009507513-2107USA000113

PATIENT
  Age: 85 Year
  Sex: Female

DRUGS (2)
  1. PROVENTIL [Suspect]
     Active Substance: ALBUTEROL
     Dosage: UNK, PRN
  2. PROVENTIL [Suspect]
     Active Substance: ALBUTEROL
     Dosage: UNK, PRN

REACTIONS (3)
  - Poor quality device used [Unknown]
  - Device malfunction [Unknown]
  - Asthenia [Unknown]

NARRATIVE: CASE EVENT DATE: 20210629
